FAERS Safety Report 8777786 (Version 2)
Quarter: 2013Q1

REPORT INFORMATION
  Report Type: Report from Study
  Country: DE (occurrence: DE)
  Receive Date: 20120912
  Receipt Date: 20130325
  Transmission Date: 20140127
  Serious: Yes (Life-Threatening, Hospitalization, Other)
  Sender: FDA-Public Use
  Company Number: DE-BAXTER-2012BAX016222

PATIENT
  Age: 73 Year
  Sex: Female
  Weight: 62 kg

DRUGS (30)
  1. ENDOXAN 1G [Suspect]
     Indication: B-CELL LYMPHOMA
     Route: 042
     Dates: start: 20120306
  2. ENDOXAN 1G [Suspect]
     Route: 042
     Dates: start: 20120508
  3. ENDOXAN 1G [Suspect]
     Route: 042
  4. RITUXIMAB [Suspect]
     Indication: B-CELL LYMPHOMA
     Route: 042
     Dates: start: 20120306
  5. RITUXIMAB [Suspect]
     Route: 042
     Dates: start: 20120508
  6. DOXORUBICIN [Suspect]
     Indication: B-CELL LYMPHOMA
     Route: 042
     Dates: start: 20120306
  7. DOXORUBICIN [Suspect]
     Route: 042
     Dates: start: 20120508
  8. VINCRISTINE [Suspect]
     Indication: B-CELL LYMPHOMA
     Route: 040
     Dates: start: 20120306
  9. VINCRISTINE [Suspect]
     Route: 042
     Dates: start: 20120508
  10. PREDNISONE [Suspect]
     Indication: B-CELL LYMPHOMA
     Route: 048
     Dates: start: 20120307
  11. PREDNISONE [Suspect]
     Route: 048
     Dates: start: 20120512
  12. PANTOZOL [Concomitant]
     Indication: DYSPEPSIA
     Route: 065
     Dates: start: 20120306
  13. PARACETAMOL [Concomitant]
     Indication: PRODUCT USED FOR UNKNOWN INDICATION
     Route: 065
     Dates: start: 20120306
  14. UROMITEXAN [Concomitant]
     Indication: PRODUCT USED FOR UNKNOWN INDICATION
     Route: 065
     Dates: start: 20120306
  15. GRANISETRON HYDROCHLORIDE [Concomitant]
     Indication: PRODUCT USED FOR UNKNOWN INDICATION
     Route: 065
     Dates: start: 20120206
  16. EMEND [Concomitant]
     Indication: VOMITING
     Route: 065
     Dates: start: 20120306
  17. MOVICOL [Concomitant]
     Indication: CONSTIPATION
     Route: 065
     Dates: start: 20120513
  18. NOVALGIN [Concomitant]
     Indication: BONE PAIN
     Route: 065
     Dates: start: 20120509
  19. IBUPROFEN [Concomitant]
     Indication: BONE PAIN
     Route: 065
     Dates: start: 20120515
  20. ACICLOVIR [Concomitant]
     Indication: HERPES ZOSTER
     Route: 065
     Dates: start: 20120714
  21. RANITIDINE [Concomitant]
     Indication: PRODUCT USED FOR UNKNOWN INDICATION
     Route: 065
     Dates: start: 20120306, end: 20120821
  22. PREDNISOLONE [Concomitant]
     Indication: PRODUCT USED FOR UNKNOWN INDICATION
     Route: 065
     Dates: start: 20120306, end: 20120821
  23. CALCILAC [Concomitant]
     Indication: HYPERTHYROIDISM
     Route: 065
     Dates: start: 20120608
  24. NEULASTA [Concomitant]
     Indication: PRODUCT USED FOR UNKNOWN INDICATION
     Route: 065
     Dates: start: 20120420, end: 20120420
  25. NEULASTA [Concomitant]
     Route: 065
     Dates: start: 20120511, end: 20120511
  26. NEULASTA [Concomitant]
     Route: 065
     Dates: start: 20120531, end: 20120531
  27. NEULASTA [Concomitant]
     Route: 065
     Dates: start: 20120621, end: 20120621
  28. ZOMETA [Concomitant]
     Indication: PRODUCT USED FOR UNKNOWN INDICATION
     Route: 065
     Dates: start: 20120724, end: 20120724
  29. ZOMETA [Concomitant]
     Route: 065
     Dates: start: 20120628, end: 20120628
  30. IRENAT [Concomitant]
     Indication: PRODUCT USED FOR UNKNOWN INDICATION
     Route: 065
     Dates: start: 20121001, end: 20121008

REACTIONS (4)
  - Neutropenia [Recovered/Resolved]
  - Leukopenia [Not Recovered/Not Resolved]
  - Bone pain [Not Recovered/Not Resolved]
  - Infusion related reaction [Not Recovered/Not Resolved]
